FAERS Safety Report 10961219 (Version 4)
Quarter: 2015Q2

REPORT INFORMATION
  Report Type: Report from Study
  Country: US (occurrence: US)
  Receive Date: 20150327
  Receipt Date: 20150629
  Transmission Date: 20150821
  Serious: No
  Sender: FDA-Public Use
  Company Number: US-JNJFOC-20150319086

PATIENT
  Sex: Female

DRUGS (17)
  1. CALCIUM 600 AND VITAMIN D [Concomitant]
     Dosage: AS NEEDED
     Route: 048
  2. VITAMIN D [Concomitant]
     Active Substance: CHOLECALCIFEROL
     Route: 048
  3. ZEASORB AF POWDER [Concomitant]
     Route: 061
  4. CELEBREX [Concomitant]
     Active Substance: CELECOXIB
     Dosage: FOR 30 DAYS
     Route: 048
  5. LOSARTAN [Concomitant]
     Active Substance: LOSARTAN
     Route: 048
  6. NYSTATIN. [Concomitant]
     Active Substance: NYSTATIN
     Dosage: 100000 UNITS/G 1 APP APPLIED TOPICALLY AS NEEDED
     Route: 061
  7. MELATONIN [Concomitant]
     Active Substance: MELATONIN
     Route: 048
  8. VITAMIN B6 [Concomitant]
     Active Substance: PYRIDOXINE HYDROCHLORIDE
     Route: 065
  9. ASPIRIN. [Concomitant]
     Active Substance: ASPIRIN
     Route: 048
  10. ACIDOPHILUS [Concomitant]
     Active Substance: LACTOBACILLUS ACIDOPHILUS
     Route: 048
  11. REMICADE [Suspect]
     Active Substance: INFLIXIMAB
     Indication: PSORIATIC ARTHROPATHY
     Route: 042
  12. OXYCODONE [Concomitant]
     Active Substance: OXYCODONE
     Dosage: AS NEEDED FOR 30 DAYS
     Route: 048
  13. HUMALOG MIX [Concomitant]
     Active Substance: INSULIN LISPRO
     Indication: TYPE 2 DIABETES MELLITUS
     Dosage: 75/25 44/48 UNITS BREAKFAST/SUPPER + TO SLIDING SCALE 170-250=4 UNITS, 251-300=6 UNITS, }300=8 UNITS
     Route: 058
  14. CLARITIN [Concomitant]
     Active Substance: LORATADINE
     Dosage: AS NEEDED
     Route: 048
  15. PRAVASTATIN [Concomitant]
     Active Substance: PRAVASTATIN\PRAVASTATIN SODIUM
     Route: 048
  16. AMBIEN [Concomitant]
     Active Substance: ZOLPIDEM TARTRATE
     Dosage: AS NEEDED
     Route: 048
  17. SERTRALINE HYDROCHLORIDE. [Concomitant]
     Active Substance: SERTRALINE HYDROCHLORIDE
     Route: 048

REACTIONS (2)
  - Nasopharyngitis [Not Recovered/Not Resolved]
  - Actinic keratosis [Unknown]

NARRATIVE: CASE EVENT DATE: 2015
